FAERS Safety Report 7602844-1 (Version None)
Quarter: 2011Q2

REPORT INFORMATION
  Report Type: 
  Country: None (occurrence: None)
  Receive Date: 20110630
  Receipt Date: 20110617
  Transmission Date: 20111010
  Serious: Yes (Other)
  Sender: FDA-Public Use
  Company Number: JP-2011-10742

PATIENT
  Age: 73 Year
  Sex: Female
  Weight: 52.4 kg

DRUGS (20)
  1. DIART (AZOSEMIDE) TABLET [Concomitant]
  2. ALFAROL (ALFACALCIDOL) CAPSULE [Concomitant]
  3. AMARYL [Concomitant]
  4. WARFARIN SODIUM [Concomitant]
  5. FERO-GRADUMET (FERROUS SULFATE) TABLET [Concomitant]
  6. SAMSCA [Suspect]
     Indication: CARDIAC FAILURE CHRONIC
     Dosage: 15 MG MILLIGRAM(S), QD, ORAL 7.5 MG MILLIGRAM(S), QD, ORAL
     Route: 048
     Dates: start: 20110428, end: 20110428
  7. SAMSCA [Suspect]
     Indication: CARDIAC FAILURE CHRONIC
     Dosage: 15 MG MILLIGRAM(S), QD, ORAL 7.5 MG MILLIGRAM(S), QD, ORAL
     Route: 048
     Dates: start: 20110429, end: 20110430
  8. ACARDI (PIMOBENDAN) CAPSULE, 1.25 MG MILLIGRAM(S) [Concomitant]
  9. PREDNISOLONE (PREDNISOLONE SODIUM PHOSPHATE) [Concomitant]
  10. CETAPRIL (ALACEPRIL) [Concomitant]
  11. ALLOPURINOL [Concomitant]
  12. REVATIO [Concomitant]
  13. ALDACTONE [Concomitant]
  14. LASIX [Concomitant]
  15. ZANTAC (RANITIDINE HYDROCHLORIDE) TABLET [Concomitant]
  16. HACHIMIJIO-GAN (HERBAL EXTRACT NOS) [Concomitant]
  17. FOSAMAC (ALENDRONATE SODIUM) TABLET [Concomitant]
  18. MEXITIL [Concomitant]
  19. LANIRAPID (METILDIGOXIN) TABLET [Concomitant]
  20. KALGUT (DENOPAMINE) TABLET [Concomitant]

REACTIONS (10)
  - HEPATIC FUNCTION ABNORMAL [None]
  - BLOOD BILIRUBIN INCREASED [None]
  - ASPARTATE AMINOTRANSFERASE INCREASED [None]
  - URINE OUTPUT INCREASED [None]
  - CARDIAC FAILURE [None]
  - BLOOD POTASSIUM DECREASED [None]
  - BLOOD SODIUM INCREASED [None]
  - ALANINE AMINOTRANSFERASE INCREASED [None]
  - CONDITION AGGRAVATED [None]
  - CONCOMITANT DISEASE AGGRAVATED [None]
